FAERS Safety Report 6714341-6 (Version None)
Quarter: 2010Q2

REPORT INFORMATION
  Report Type: 
  Country: None (occurrence: None)
  Receive Date: 20100504
  Receipt Date: 20100420
  Transmission Date: 20101027
  Serious: Yes (Death, Hospitalization, Other)
  Sender: FDA-Public Use
  Company Number: 2010SCPR000532

PATIENT
  Age: 71 Year
  Sex: Female

DRUGS (3)
  1. IMIPRAMINE HCL [Suspect]
     Indication: INCONTINENCE
     Dosage: 50 MG, QD,
     Dates: start: 20100129, end: 20100214
  2. NAMENDA [Concomitant]
  3. ATENOLOL [Concomitant]

REACTIONS (8)
  - CONDITION AGGRAVATED [None]
  - CONFUSIONAL STATE [None]
  - COORDINATION ABNORMAL [None]
  - DEMENTIA [None]
  - FALL [None]
  - GAIT DISTURBANCE [None]
  - MULTIPLE FRACTURES [None]
  - RIB FRACTURE [None]
